FAERS Safety Report 8147007-9 (Version None)
Quarter: 2012Q1

REPORT INFORMATION
  Report Type: 
  Country: None (occurrence: None)
  Receive Date: 20120217
  Receipt Date: 20120209
  Transmission Date: 20120608
  Serious: Yes (Hospitalization, Other)
  Sender: FDA-Public Use
  Company Number: US-ASTRAZENECA-2010SE58877

PATIENT
  Age: 50 Year
  Sex: Female
  Weight: 90.7 kg

DRUGS (6)
  1. ZYRTEC [Concomitant]
  2. PREVACID [Suspect]
     Indication: GASTROOESOPHAGEAL REFLUX DISEASE
     Route: 065
  3. NEXIUM [Suspect]
     Indication: GASTROOESOPHAGEAL REFLUX DISEASE
     Route: 048
     Dates: start: 20040101
  4. ZOLOFT [Concomitant]
  5. PRILOSEC [Suspect]
     Indication: GASTROOESOPHAGEAL REFLUX DISEASE
     Route: 048
  6. LIPITOR [Concomitant]

REACTIONS (13)
  - VOCAL CORD NEOPLASM [None]
  - MALAISE [None]
  - OESOPHAGEAL CARCINOMA [None]
  - LARYNGEAL NEOPLASM [None]
  - INCORRECT DOSE ADMINISTERED [None]
  - GASTROOESOPHAGEAL REFLUX DISEASE [None]
  - EXPIRED DRUG ADMINISTERED [None]
  - ARTHRITIS [None]
  - VOMITING [None]
  - PRECANCEROUS CELLS PRESENT [None]
  - SINUSITIS [None]
  - HEADACHE [None]
  - NAUSEA [None]
